FAERS Safety Report 12640951 (Version 1)
Quarter: 2016Q3

REPORT INFORMATION
  Report Type: Spontaneous
  Country: US (occurrence: US)
  Receive Date: 20160810
  Receipt Date: 20160810
  Transmission Date: 20161109
  Serious: No
  Sender: FDA-Public Use
  Company Number: US-BEH-2016072107

PATIENT
  Age: 36 Year
  Sex: Female
  Weight: 143.31 kg

DRUGS (29)
  1. HIZENTRA [Suspect]
     Active Substance: HUMAN IMMUNOGLOBULIN G
     Dosage: UNK
     Route: 058
  2. ACETAMINOPHEN. [Concomitant]
     Active Substance: ACETAMINOPHEN
  3. METOPROLOL. [Concomitant]
     Active Substance: METOPROLOL
  4. NERVIDOX                           /00754101/ [Concomitant]
  5. VITAMIN D                          /00107901/ [Concomitant]
     Active Substance: ERGOCALCIFEROL
  6. FIRAZYR [Concomitant]
     Active Substance: ICATIBANT ACETATE
  7. HIZENTRA [Suspect]
     Active Substance: HUMAN IMMUNOGLOBULIN G
     Dosage: 15 G, QW
     Route: 058
     Dates: start: 20151216
  8. HIZENTRA [Suspect]
     Active Substance: HUMAN IMMUNOGLOBULIN G
     Indication: IMMUNODEFICIENCY COMMON VARIABLE
     Route: 058
  9. TROSPIUM [Concomitant]
     Active Substance: TROSPIUM
  10. AMITRIPTYLINE [Concomitant]
     Active Substance: AMITRIPTYLINE
  11. IMITREX [Concomitant]
     Active Substance: SUMATRIPTAN SUCCINATE
  12. VITAMIN B [Concomitant]
     Active Substance: VITAMIN B
  13. BENADRYL [Concomitant]
     Active Substance: DIPHENHYDRAMINE HYDROCHLORIDE
  14. FLUPHENAZINE [Concomitant]
     Active Substance: FLUPHENAZINE
  15. HYDROXYZINE [Concomitant]
     Active Substance: HYDROXYZINE\HYDROXYZINE HYDROCHLORIDE
  16. IBUPROFEN. [Concomitant]
     Active Substance: IBUPROFEN
  17. TRAZODONE [Concomitant]
     Active Substance: TRAZODONE HYDROCHLORIDE
  18. LEVOTHYROXINE. [Concomitant]
     Active Substance: LEVOTHYROXINE
  19. MOXATAG [Concomitant]
     Active Substance: AMOXICILLIN
  20. DIPHENHYDRAMINE. [Concomitant]
     Active Substance: DIPHENHYDRAMINE
  21. SUMATRIPTAN. [Concomitant]
     Active Substance: SUMATRIPTAN
  22. ALBUTEROL                          /00139501/ [Concomitant]
     Active Substance: ALBUTEROL
  23. CINRYZE [Concomitant]
     Active Substance: HUMAN C1-ESTERASE INHIBITOR
  24. NASONEX [Concomitant]
     Active Substance: MOMETASONE FUROATE
  25. TRANEXAMIC [Concomitant]
  26. LAMICTAL [Concomitant]
     Active Substance: LAMOTRIGINE
  27. HIZENTRA [Suspect]
     Active Substance: HUMAN IMMUNOGLOBULIN G
     Dosage: UNK
     Route: 058
  28. EPIPEN [Concomitant]
     Active Substance: EPINEPHRINE
  29. DIFLUCAN [Concomitant]
     Active Substance: FLUCONAZOLE

REACTIONS (1)
  - Sinusitis [Unknown]

NARRATIVE: CASE EVENT DATE: 201604
